FAERS Safety Report 15155830 (Version 1)
Quarter: 2018Q3

REPORT INFORMATION
  Report Type: Spontaneous
  Country: DE (occurrence: DE)
  Receive Date: 20180717
  Receipt Date: 20180717
  Transmission Date: 20181010
  Serious: Yes (Other)
  Sender: FDA-Public Use
  Company Number: DE-US WORLDMEDS, LLC-STA_00018234

PATIENT
  Age: 77 Year
  Sex: Male
  Weight: 75 kg

DRUGS (11)
  1. MADOPAR T 100/25 MG [Concomitant]
     Indication: PARKINSON^S DISEASE
  2. MOTILIUM 10MG [Concomitant]
  3. EXELON 9,5MG TTS [Concomitant]
     Route: 062
  4. TAMSULOSIN 0,4 MG [Concomitant]
     Indication: INCONTINENCE
  5. NACOM RET. 200/50 MG [Concomitant]
     Indication: PARKINSON^S DISEASE
  6. DELIX 2,5MG [Concomitant]
     Indication: HYPERTENSION
  7. VITAMIN B12 1000 [Concomitant]
     Indication: VITAMIN B12 DEFICIENCY
  8. TOVIAZ [Concomitant]
     Active Substance: FESOTERODINE FUMARATE
     Indication: INCONTINENCE
  9. APOMORPHINE HYDROCHLORIDE [Suspect]
     Active Substance: APOMORPHINE HYDROCHLORIDE
     Indication: PARKINSON^S DISEASE
     Dosage: FROM 07.00 AM UNTIL 10.00 PM DAILY, NO BOLUS
     Route: 058
     Dates: start: 201511
  10. MADOPAR LT 100/25 MG [Concomitant]
     Indication: PARKINSON^S DISEASE
  11. CIRCADIN 2MG [Concomitant]
     Indication: SLEEP DISORDER

REACTIONS (2)
  - Injection site nodule [Unknown]
  - Injection site necrosis [Unknown]

NARRATIVE: CASE EVENT DATE: 20160615
